FAERS Safety Report 10927544 (Version 1)
Quarter: 2015Q1

REPORT INFORMATION
  Report Type: Spontaneous
  Country: US (occurrence: US)
  Receive Date: 20150318
  Receipt Date: 20150318
  Transmission Date: 20150721
  Serious: Yes (Other)
  Sender: FDA-Public Use
  Company Number: US-BAXTER-2015BAX013524

PATIENT
  Age: 53 Year
  Sex: Male

DRUGS (18)
  1. VANCOMYCIN INJECTION, USP [Suspect]
     Active Substance: VANCOMYCIN
     Indication: EVIDENCE BASED TREATMENT
     Route: 042
  2. PYRIMETHAMINE [Suspect]
     Active Substance: PYRIMETHAMINE
     Indication: EVIDENCE BASED TREATMENT
     Route: 065
  3. TACROLIMUS. [Suspect]
     Active Substance: TACROLIMUS
     Indication: CHRONIC KIDNEY DISEASE
  4. VORICONAZOLE. [Suspect]
     Active Substance: VORICONAZOLE
     Indication: COMPLICATIONS OF TRANSPLANTED LIVER
     Route: 042
  5. MEROPENEM. [Suspect]
     Active Substance: MEROPENEM
     Indication: EVIDENCE BASED TREATMENT
     Route: 065
  6. LEUCOVORIN [Suspect]
     Active Substance: LEUCOVORIN
     Indication: EVIDENCE BASED TREATMENT
     Route: 065
  7. VORICONAZOLE. [Suspect]
     Active Substance: VORICONAZOLE
     Indication: ENCEPHALITIS FUNGAL
     Route: 042
  8. MICAFUNGIN [Suspect]
     Active Substance: MICAFUNGIN
     Indication: COMPLICATIONS OF TRANSPLANTED LIVER
  9. IMIPENEM [Concomitant]
     Active Substance: IMIPENEM
     Indication: PERITONITIS BACTERIAL
     Route: 065
  10. SULFAMETHOXAZOLE AND TRIMETHOPRIM [Concomitant]
     Active Substance: SULFAMETHOXAZOLE\TRIMETHOPRIM
     Indication: PROPHYLAXIS
     Route: 065
  11. MICAFUNGIN [Suspect]
     Active Substance: MICAFUNGIN
     Indication: ASPERGILLUS INFECTION
  12. SULFADIAZINE. [Suspect]
     Active Substance: SULFADIAZINE
     Indication: EVIDENCE BASED TREATMENT
     Route: 065
  13. LIPOSOMAL AMPHOTERICIN B [Suspect]
     Active Substance: AMPHOTERICIN B
     Indication: EVIDENCE BASED TREATMENT
     Route: 065
  14. VORICONAZOLE. [Suspect]
     Active Substance: VORICONAZOLE
     Indication: ASPERGILLUS INFECTION
     Route: 048
  15. MICAFUNGIN [Suspect]
     Active Substance: MICAFUNGIN
     Indication: ENCEPHALITIS FUNGAL
     Route: 042
  16. TACROLIMUS. [Suspect]
     Active Substance: TACROLIMUS
     Indication: IMMUNOSUPPRESSION
     Route: 065
  17. LINEZOLID. [Concomitant]
     Active Substance: LINEZOLID
     Indication: PERITONITIS BACTERIAL
     Route: 065
  18. VALGANCICLOVIR [Concomitant]
     Active Substance: VALGANCICLOVIR
     Indication: PROPHYLAXIS
     Route: 065

REACTIONS (3)
  - Transaminases increased [Recovered/Resolved]
  - Chronic kidney disease [Recovered/Resolved]
  - Transplant rejection [Recovered/Resolved]
